FAERS Safety Report 10790405 (Version 5)
Quarter: 2015Q3

REPORT INFORMATION
  Report Type: Spontaneous
  Country: BE (occurrence: BE)
  Receive Date: 20150212
  Receipt Date: 20150914
  Transmission Date: 20151125
  Serious: Yes (Death, Hospitalization)
  Sender: FDA-Public Use
  Company Number: BE-ABBVIE-15P-013-1344543-00

PATIENT
  Sex: Male

DRUGS (5)
  1. DUODOPA [Suspect]
     Active Substance: CARBIDOPA\LEVODOPA
     Dosage: DOSE CONTINUOUSLY MONITORED AND ADAPTED
     Route: 050
     Dates: start: 20110901, end: 20141219
  2. DUODOPA [Suspect]
     Active Substance: CARBIDOPA\LEVODOPA
     Indication: PARKINSON^S DISEASE
     Dosage: AM=10 ML, CD=2.6 ML/H DURING 16H, ED=3 ML
     Route: 050
     Dates: start: 20110829, end: 20110901
  3. DUODOPA [Suspect]
     Active Substance: CARBIDOPA\LEVODOPA
     Dosage: AM=10 ML, CD=3.6 ML/H DURING 16H, ED=3 ML
     Route: 050
     Dates: start: 20141219, end: 20150207
  4. DUODOPA [Suspect]
     Active Substance: CARBIDOPA\LEVODOPA
     Dosage: AM:10ML; CD: 3.6ML/H FOR 16HRS; ED: 3ML
     Route: 050
     Dates: start: 20150207, end: 20150212
  5. DUODOPA [Suspect]
     Active Substance: CARBIDOPA\LEVODOPA
     Dosage: AM:10ML; CD: 3.6ML/H FOR 16HRS; ED: 3ML
     Route: 050
     Dates: start: 20150212

REACTIONS (3)
  - Pneumonia [Fatal]
  - Incorrect route of drug administration [Unknown]
  - Lung infection [Unknown]
